FAERS Safety Report 17225480 (Version 4)
Quarter: 2022Q4

REPORT INFORMATION
  Report Type: Spontaneous
  Country: US (occurrence: None)
  Receive Date: 20200102
  Receipt Date: 20221017
  Transmission Date: 20230113
  Serious: Yes (Other)
  Sender: FDA-Public Use
  Company Number: 2020SE00144

PATIENT
  Age: 16325 Day
  Sex: Female
  Weight: 78.9 kg

DRUGS (75)
  1. NEXIUM [Suspect]
     Active Substance: ESOMEPRAZOLE MAGNESIUM
     Indication: Gastrooesophageal reflux disease
     Route: 048
     Dates: start: 2007, end: 2013
  2. NEXIUM [Suspect]
     Active Substance: ESOMEPRAZOLE MAGNESIUM
     Indication: Gastrooesophageal reflux disease
     Route: 048
     Dates: start: 2007, end: 2019
  3. NEXIUM [Suspect]
     Active Substance: ESOMEPRAZOLE MAGNESIUM
     Indication: Gastrooesophageal reflux disease
     Dosage: ESOMEPRAZOLE
     Route: 065
     Dates: start: 2017
  4. NEXIUM [Suspect]
     Active Substance: ESOMEPRAZOLE MAGNESIUM
     Indication: Gastrooesophageal reflux disease
     Route: 048
     Dates: start: 20070809
  5. NEXIUM [Suspect]
     Active Substance: ESOMEPRAZOLE MAGNESIUM
     Indication: Gastrooesophageal reflux disease
     Dosage: ESOMEPRAZOLE
     Route: 065
     Dates: start: 20170208
  6. OMEPRAZOLE [Suspect]
     Active Substance: OMEPRAZOLE
     Indication: Gastrooesophageal reflux disease
     Route: 065
     Dates: start: 2010
  7. OMEPRAZOLE [Suspect]
     Active Substance: OMEPRAZOLE
     Indication: Gastrooesophageal reflux disease
     Route: 065
     Dates: start: 2011
  8. DEXILANT [Suspect]
     Active Substance: DEXLANSOPRAZOLE
     Indication: Gastrooesophageal reflux disease
     Route: 065
     Dates: start: 2007, end: 2019
  9. DEXILANT [Suspect]
     Active Substance: DEXLANSOPRAZOLE
     Indication: Gastrooesophageal reflux disease
     Route: 065
     Dates: start: 2013
  10. DEXILANT [Suspect]
     Active Substance: DEXLANSOPRAZOLE
     Indication: Gastrooesophageal reflux disease
     Route: 065
     Dates: start: 2017
  11. DEXILANT [Suspect]
     Active Substance: DEXLANSOPRAZOLE
     Indication: Gastrooesophageal reflux disease
     Route: 048
     Dates: start: 20130806
  12. DEXILANT [Suspect]
     Active Substance: DEXLANSOPRAZOLE
     Indication: Gastrooesophageal reflux disease
     Route: 065
     Dates: start: 20170501
  13. PROTONIX [Suspect]
     Active Substance: PANTOPRAZOLE SODIUM
     Indication: Gastrooesophageal reflux disease
     Route: 065
     Dates: start: 2007, end: 2019
  14. PROTONIX [Suspect]
     Active Substance: PANTOPRAZOLE SODIUM
     Indication: Gastrooesophageal reflux disease
     Route: 065
     Dates: start: 2019
  15. PROTONIX [Suspect]
     Active Substance: PANTOPRAZOLE SODIUM
     Indication: Gastrooesophageal reflux disease
     Dosage: PANTOPRAZOLE
     Route: 065
     Dates: start: 2012
  16. PROTONIX [Suspect]
     Active Substance: PANTOPRAZOLE SODIUM
     Indication: Gastrooesophageal reflux disease
     Dosage: PANTOPRAZOLE
     Route: 065
     Dates: start: 2014, end: 2017
  17. PROTONIX [Suspect]
     Active Substance: PANTOPRAZOLE SODIUM
     Indication: Gastrooesophageal reflux disease
     Dosage: PANTOPRAZOLE
     Route: 048
     Dates: start: 20120223
  18. PROTONIX [Suspect]
     Active Substance: PANTOPRAZOLE SODIUM
     Indication: Gastrooesophageal reflux disease
     Dosage: PANTOPRAZOLE
     Route: 048
     Dates: start: 20170225
  19. PROTONIX [Suspect]
     Active Substance: PANTOPRAZOLE SODIUM
     Indication: Gastrooesophageal reflux disease
     Dosage: GEERIC
     Route: 065
  20. LEVETIRACETAM [Concomitant]
     Active Substance: LEVETIRACETAM
     Indication: Seizure
     Dates: start: 2008
  21. SIMVASTATIN [Concomitant]
     Active Substance: SIMVASTATIN
     Indication: Blood cholesterol abnormal
     Dates: start: 2009
  22. SIMVASTATIN [Concomitant]
     Active Substance: SIMVASTATIN
     Indication: Blood cholesterol abnormal
     Dates: start: 2015
  23. SUCRALFATE [Concomitant]
     Active Substance: SUCRALFATE
     Indication: Ulcer
     Dates: start: 2013
  24. LISINOPRIL [Concomitant]
     Active Substance: LISINOPRIL
     Indication: Hypertension
     Dates: start: 2009
  25. LISINOPRIL [Concomitant]
     Active Substance: LISINOPRIL
     Indication: Hypertension
     Dates: start: 2015
  26. ALPRAZOLAM [Concomitant]
     Active Substance: ALPRAZOLAM
     Indication: Anxiety
     Dates: start: 2014, end: 2017
  27. MONTELUKAST [Concomitant]
     Active Substance: MONTELUKAST SODIUM
     Indication: Multiple allergies
     Dates: start: 2018, end: 2019
  28. BIOTIN [Concomitant]
     Active Substance: BIOTIN
     Indication: Vitamin supplementation
     Dates: start: 2018
  29. CYSTEX [Concomitant]
     Active Substance: METHENAMINE\SODIUM SALICYLATE
     Indication: Renal disorder
     Dates: start: 2013
  30. RIZATRIPTAN [Concomitant]
     Active Substance: RIZATRIPTAN
     Indication: Migraine
     Dates: start: 2019
  31. PROMETHAZINE [Concomitant]
     Active Substance: PROMETHAZINE HYDROCHLORIDE
     Indication: Multiple allergies
     Dates: start: 2008, end: 2017
  32. VIMPAT [Concomitant]
     Active Substance: LACOSAMIDE
     Indication: Seizure
     Dates: start: 2015
  33. NAPROXEN [Concomitant]
     Active Substance: NAPROXEN
     Indication: Pyrexia
     Dates: start: 2009
  34. NAPROXEN [Concomitant]
     Active Substance: NAPROXEN
     Indication: Pain
     Dates: start: 2009
  35. NAPROXEN [Concomitant]
     Active Substance: NAPROXEN
     Indication: Pyrexia
     Dates: start: 2014, end: 2015
  36. NAPROXEN [Concomitant]
     Active Substance: NAPROXEN
     Indication: Pain
     Dates: start: 2014, end: 2015
  37. RANITIDINE [Concomitant]
     Active Substance: RANITIDINE
     Dates: start: 2009, end: 2010
  38. RANITIDINE [Concomitant]
     Active Substance: RANITIDINE
     Dates: start: 2018
  39. ZOLPIDEM TARTRATE [Concomitant]
     Active Substance: ZOLPIDEM TARTRATE
  40. FLUOXETINE [Concomitant]
     Active Substance: FLUOXETINE HYDROCHLORIDE
  41. SYMBICORT [Concomitant]
     Active Substance: BUDESONIDE\FORMOTEROL FUMARATE DIHYDRATE
  42. TOPIRAMATE [Concomitant]
     Active Substance: TOPIRAMATE
  43. DULERA [Concomitant]
     Active Substance: FORMOTEROL FUMARATE DIHYDRATE\MOMETASONE FUROATE
  44. MOBIC [Concomitant]
     Active Substance: MELOXICAM
  45. PROVENTIL [Concomitant]
     Active Substance: ALBUTEROL
  46. SEROQUEL [Concomitant]
     Active Substance: QUETIAPINE FUMARATE
  47. ETODOLAC [Concomitant]
     Active Substance: ETODOLAC
  48. PRAVASTATIN [Concomitant]
     Active Substance: PRAVASTATIN
  49. PREMARIN [Concomitant]
     Active Substance: ESTROGENS, CONJUGATED
  50. CEFDINIR [Concomitant]
     Active Substance: CEFDINIR
  51. NITROFURANTOIN [Concomitant]
     Active Substance: NITROFURANTOIN
  52. LEVAQUIN [Concomitant]
     Active Substance: LEVOFLOXACIN
  53. METRONIDAZOLE [Concomitant]
     Active Substance: METRONIDAZOLE
  54. PHENAZOPYRIDINE [Concomitant]
     Active Substance: PHENAZOPYRIDINE
  55. DEPAKOTE [Concomitant]
     Active Substance: DIVALPROEX SODIUM
  56. BENZTROPANE [Concomitant]
  57. TRAZODONE [Concomitant]
     Active Substance: TRAZODONE HYDROCHLORIDE
  58. FAMOTIDINE [Concomitant]
     Active Substance: FAMOTIDINE
  59. VENLAFAXINE [Concomitant]
     Active Substance: VENLAFAXINE HYDROCHLORIDE
  60. IBUPROFEN [Concomitant]
     Active Substance: IBUPROFEN
  61. DOXYCYCLINE [Concomitant]
     Active Substance: DOXYCYCLINE
  62. ONDANSETRON [Concomitant]
     Active Substance: ONDANSETRON
  63. BENZONATATE [Concomitant]
     Active Substance: BENZONATATE
  64. AMITRIPTYLINE [Concomitant]
     Active Substance: AMITRIPTYLINE
  65. NITROSTAT [Concomitant]
     Active Substance: NITROGLYCERIN
  66. CLINDAMYCIN [Concomitant]
     Active Substance: CLINDAMYCIN
  67. FLUCONAZOLE [Concomitant]
     Active Substance: FLUCONAZOLE
  68. PREDNISONE [Concomitant]
     Active Substance: PREDNISONE
  69. CETIRIZINE HYDROCHLORIDE [Concomitant]
     Active Substance: CETIRIZINE HYDROCHLORIDE
  70. CLARITHROMYCIN [Concomitant]
     Active Substance: CLARITHROMYCIN
  71. CYCLOBENZAPRINE [Concomitant]
     Active Substance: CYCLOBENZAPRINE
  72. POTASSIUM CHLORIDE [Concomitant]
     Active Substance: POTASSIUM CHLORIDE
  73. CLONAZEPAM [Concomitant]
     Active Substance: CLONAZEPAM
     Indication: Anxiety
     Dates: start: 2007
  74. HYDROCHLOROTHIAZIDE [Concomitant]
     Active Substance: HYDROCHLOROTHIAZIDE
  75. AZITHROMYCIN [Concomitant]
     Active Substance: AZITHROMYCIN

REACTIONS (4)
  - Acute kidney injury [Not Recovered/Not Resolved]
  - Chronic kidney disease [Not Recovered/Not Resolved]
  - Renal failure [Unknown]
  - Renal hypertension [Unknown]

NARRATIVE: CASE EVENT DATE: 20140905
